FAERS Safety Report 13725971 (Version 1)
Quarter: 2017Q3

REPORT INFORMATION
  Report Type: Spontaneous
  Country: FR (occurrence: FR)
  Receive Date: 20170706
  Receipt Date: 20170706
  Transmission Date: 20171127
  Serious: Yes (Other)
  Sender: FDA-Public Use
  Company Number: FR-SA-2014SA061839

PATIENT
  Age: 65 Year
  Sex: Female
  Weight: 56 kg

DRUGS (18)
  1. ALFUZOSIN HYDROCHLORIDE. [Suspect]
     Active Substance: ALFUZOSIN HYDROCHLORIDE
     Indication: PRODUCT USED FOR UNKNOWN INDICATION
     Route: 048
     Dates: start: 20140106
  2. SEROPLEX [Suspect]
     Active Substance: ESCITALOPRAM OXALATE
     Indication: PRODUCT USED FOR UNKNOWN INDICATION
     Route: 048
  3. LEVOTHYROX [Suspect]
     Active Substance: LEVOTHYROXINE
     Indication: PRODUCT USED FOR UNKNOWN INDICATION
     Route: 048
  4. BROMAZEPAM [Concomitant]
     Active Substance: BROMAZEPAM
     Route: 065
  5. SYMBICORT [Concomitant]
     Active Substance: BUDESONIDE\FORMOTEROL FUMARATE DIHYDRATE
     Route: 065
  6. ATARAX [Suspect]
     Active Substance: HYDROXYZINE HYDROCHLORIDE
     Indication: PRODUCT USED FOR UNKNOWN INDICATION
     Route: 048
  7. CRESTOR [Suspect]
     Active Substance: ROSUVASTATIN CALCIUM
     Indication: PRODUCT USED FOR UNKNOWN INDICATION
     Route: 048
  8. MONTELUKAST [Concomitant]
     Active Substance: MONTELUKAST SODIUM
     Route: 065
  9. THERALENE [Concomitant]
     Active Substance: TRIMEPRAZINE
     Indication: INSOMNIA
     Route: 065
     Dates: start: 20131221
  10. MOVICOL [Concomitant]
     Active Substance: POLYETHYLENE GLYCOL 3350\POTASSIUM CHLORIDE\SODIUM BICARBONATE\SODIUM CHLORIDE
     Indication: CONSTIPATION
     Route: 065
     Dates: start: 20131217
  11. KARDEGIC [Suspect]
     Active Substance: ASPIRIN LYSINE
     Indication: PRODUCT USED FOR UNKNOWN INDICATION
     Route: 048
  12. LEPTICUR [Concomitant]
     Active Substance: TROPATEPINE HYDROCHLORIDE
     Route: 048
     Dates: start: 20131209
  13. APROVEL [Suspect]
     Active Substance: IRBESARTAN
     Indication: PRODUCT USED FOR UNKNOWN INDICATION
     Route: 048
  14. METEOSPASMYL [Concomitant]
     Active Substance: ALVERINE CITRATE\DIMETHICONE
     Route: 065
  15. METFORMIN [Suspect]
     Active Substance: METFORMIN HYDROCHLORIDE
     Indication: PRODUCT USED FOR UNKNOWN INDICATION
     Route: 048
  16. VALERIAN [Concomitant]
     Active Substance: VALERIAN
     Route: 065
  17. IMOVANE [Suspect]
     Active Substance: ZOPICLONE
     Indication: PRODUCT USED FOR UNKNOWN INDICATION
     Route: 048
  18. AMAREL [Concomitant]
     Active Substance: GLIMEPIRIDE
     Route: 065

REACTIONS (4)
  - Dyspepsia [Recovering/Resolving]
  - Fatigue [Recovering/Resolving]
  - Nasal congestion [Recovering/Resolving]
  - Nausea [Recovering/Resolving]

NARRATIVE: CASE EVENT DATE: 20140114
